FAERS Safety Report 26117268 (Version 1)
Quarter: 2025Q4

REPORT INFORMATION
  Report Type: Report from Study
  Country: US (occurrence: US)
  Receive Date: 20251203
  Receipt Date: 20251203
  Transmission Date: 20260118
  Serious: No
  Sender: INCYTE
  Company Number: US-EVENT-004984

PATIENT

DRUGS (1)
  1. JAKAFI [Suspect]
     Active Substance: RUXOLITINIB
     Indication: Myelofibrosis
     Dosage: 20 MILLIGRAM, BID (TAKE 1 TABLET TWICE A DAY)
     Route: 065

REACTIONS (3)
  - Dry throat [Unknown]
  - Dry mouth [Unknown]
  - Drug interaction [Unknown]
